FAERS Safety Report 8427588-8 (Version None)
Quarter: 2012Q2

REPORT INFORMATION
  Report Type: 
  Country: None (occurrence: None)
  Receive Date: 20120611
  Receipt Date: 20120530
  Transmission Date: 20120825
  Serious: Yes (Other)
  Sender: FDA-Public Use
  Company Number: US-ELI_LILLY_AND_COMPANY-US201206000185

PATIENT
  Age: 72 Year
  Sex: Female

DRUGS (1)
  1. FORTEO [Suspect]

REACTIONS (4)
  - FEAR [None]
  - BLINDNESS UNILATERAL [None]
  - STENT PLACEMENT [None]
  - CATARACT [None]
